FAERS Safety Report 9333927 (Version 1)
Quarter: 2013Q2

REPORT INFORMATION
  Report Type: Spontaneous
  Country: DE (occurrence: None)
  Receive Date: 20130604
  Receipt Date: 20130604
  Transmission Date: 20140414
  Serious: Yes (Hospitalization, Other)
  Sender: FDA-Public Use
  Company Number: NGX_01791_2013

PATIENT
  Age: 37 Year
  Sex: Male
  Weight: 78 kg

DRUGS (5)
  1. QUTENZA [Suspect]
     Indication: NEURALGIA
     Dosage: PATCH TO LEFT THORACIC TOPICAL??
     Dates: start: 20130326, end: 20130326
  2. LYRICA [Concomitant]
  3. TILIDIN [Concomitant]
  4. PANTOZOL /01263204/ [Concomitant]
  5. LIDOCAIN /00033401/ [Concomitant]

REACTIONS (2)
  - Application site pain [None]
  - Pain [None]
